FAERS Safety Report 4626606-2 (Version None)
Quarter: 2005Q1

REPORT INFORMATION
  Report Type: 
  Country: None (occurrence: None)
  Receive Date: 20050330
  Receipt Date: 20050318
  Transmission Date: 20050727
  Serious: Yes (Other)
  Sender: FDA-Public Use
  Company Number: KII-2005-0015573

PATIENT
  Age: 34 Year
  Sex: Female

DRUGS (6)
  1. MORPHINE SULFATE [Suspect]
     Indication: PAIN
     Dosage: SEE TEXT, ORAL
     Route: 048
  2. BENZODIAZEPINE DERIVATIVES() [Suspect]
     Indication: INJURY
     Dosage: ORAL
     Route: 048
  3. CARISOPRODOL [Suspect]
     Indication: INJURY
     Dosage: SEE TEXT, ORAL
     Route: 048
  4. OTHER HYPNOTICS AND SEDATIVES () [Suspect]
     Indication: INJURY
     Dosage: ORAL
     Route: 048
  5. ACETAMINOPHEN AND OXYCODONE HCL [Suspect]
     Indication: INJURY
     Dosage: SEE TEXT, ORAL
     Route: 048
  6. OTHER ANALGESICS AND ANTIPYRETICS() [Suspect]
     Indication: INJURY
     Dosage: SEE TEXT, ORAL
     Route: 048

REACTIONS (4)
  - COMA [None]
  - HEART RATE DECREASED [None]
  - INTENTIONAL MISUSE [None]
  - LOSS OF CONSCIOUSNESS [None]
